FAERS Safety Report 16944836 (Version 1)
Quarter: 2019Q4

REPORT INFORMATION
  Report Type: Spontaneous
  Country: BR (occurrence: BR)
  Receive Date: 20191022
  Receipt Date: 20191022
  Transmission Date: 20200122
  Serious: Yes (Other)
  Sender: FDA-Public Use
  Company Number: BR-PFIZER INC-2019448054

PATIENT
  Age: 68 Year
  Sex: Female

DRUGS (1)
  1. SUTENT [Suspect]
     Active Substance: SUNITINIB MALATE
     Dosage: FOR 28 DAYS, PAUSE OF 14 DAYS
     Dates: start: 20190916

REACTIONS (9)
  - Dyspnoea [Unknown]
  - Tongue injury [Not Recovered/Not Resolved]
  - Sleep disorder [Unknown]
  - Asthenia [Not Recovered/Not Resolved]
  - Lip injury [Not Recovered/Not Resolved]
  - Oral pain [Unknown]
  - Mouth injury [Not Recovered/Not Resolved]
  - Abdominal pain upper [Not Recovered/Not Resolved]
  - Chest discomfort [Unknown]

NARRATIVE: CASE EVENT DATE: 2019
